FAERS Safety Report 20306764 (Version 1)
Quarter: 2022Q1

REPORT INFORMATION
  Report Type: Report from Study
  Country: IT (occurrence: IT)
  Receive Date: 20220106
  Receipt Date: 20220106
  Transmission Date: 20220424
  Serious: Yes (Other)
  Sender: FDA-Public Use
  Company Number: None

PATIENT
  Age: 90 Year
  Sex: Female

DRUGS (11)
  1. ESCITALOPRAM [Suspect]
     Active Substance: ESCITALOPRAM OXALATE
     Indication: Product used for unknown indication
     Dates: start: 20211004, end: 20211018
  2. MIRTAZAPINE [Suspect]
     Active Substance: MIRTAZAPINE
     Indication: Product used for unknown indication
     Dates: start: 20210101, end: 20211018
  3. CRESTOR [Concomitant]
     Active Substance: ROSUVASTATIN CALCIUM
     Dosage: STRENGTH: 5 MG
  4. CORDARONE [Concomitant]
     Active Substance: AMIODARONE HYDROCHLORIDE
     Dosage: STRENGTH: 200 MG TABLETS
  5. ALLOPURINOL [Concomitant]
     Active Substance: ALLOPURINOL
     Dosage: STRENGTH: 300 MG TABLETS
  6. BISOPROLOL [Concomitant]
     Active Substance: BISOPROLOL
  7. ERYTHROPOIETIN [Concomitant]
     Active Substance: ERYTHROPOIETIN
     Dosage: STRENGTH: 4,000 IU / 0.4 ML
  8. CHOLINE ALFOSCERATE [Concomitant]
     Active Substance: CHOLINE ALFOSCERATE
  9. OMEPRAZOLE [Concomitant]
     Active Substance: OMEPRAZOLE
  10. EDOXABAN TOSYLATE [Concomitant]
     Active Substance: EDOXABAN TOSYLATE
     Dosage: STRENGTH: 30 MG
  11. LASIX [Concomitant]
     Active Substance: FUROSEMIDE
     Dosage: STRENGTH: 25 MG

REACTIONS (1)
  - Feeling jittery [Recovering/Resolving]

NARRATIVE: CASE EVENT DATE: 20211018
